FAERS Safety Report 10195992 (Version 6)
Quarter: 2014Q2

REPORT INFORMATION
  Report Type: Report from Study
  Country: CA (occurrence: CA)
  Receive Date: 20140527
  Receipt Date: 20140620
  Transmission Date: 20141212
  Serious: Yes (Death, Hospitalization, Other)
  Sender: FDA-Public Use
  Company Number: PHHY2014CA043771

PATIENT
  Age: 62 Year
  Sex: Female

DRUGS (7)
  1. CLOZARIL [Suspect]
     Indication: SCHIZOAFFECTIVE DISORDER
     Dosage: 25 MG, HS
     Route: 048
     Dates: start: 20130122, end: 20140515
  2. EFFEXOR [Concomitant]
  3. RIVOTRIL [Concomitant]
     Dosage: 0.5 MG, BID
     Dates: start: 20140514
  4. RIVOTRIL [Concomitant]
     Dosage: 1 MG, BID
  5. RISPERDAL [Concomitant]
     Dates: start: 20140514
  6. DILAUDID [Concomitant]
     Dosage: 0.5 MG, UNK
     Dates: start: 20140516
  7. ZIPRASIDONE [Concomitant]

REACTIONS (3)
  - Neuroendocrine carcinoma [Fatal]
  - Metastatic neoplasm [Unknown]
  - Malaise [Unknown]
